FAERS Safety Report 20207925 (Version 2)
Quarter: 2021Q4

REPORT INFORMATION
  Report Type: Spontaneous
  Country: TR (occurrence: TR)
  Receive Date: 20211220
  Receipt Date: 20211228
  Transmission Date: 20220303
  Serious: Yes (Other)
  Sender: FDA-Public Use
  Company Number: TR-NOVARTISPH-NVSC2021TR290357

PATIENT
  Age: 25 Year
  Sex: Female

DRUGS (1)
  1. ILARIS [Suspect]
     Active Substance: CANAKINUMAB
     Indication: Amyloidosis
     Dosage: UNK, QMO
     Route: 065

REACTIONS (4)
  - Condition aggravated [Unknown]
  - Product supply issue [Unknown]
  - Arthralgia [Unknown]
  - Off label use [Unknown]
